FAERS Safety Report 7311303-5 (Version None)
Quarter: 2011Q1

REPORT INFORMATION
  Report Type: 
  Country: None (occurrence: None)
  Receive Date: 20110224
  Receipt Date: 20110211
  Transmission Date: 20110831
  Serious: Yes (Other)
  Sender: FDA-Public Use
  Company Number: US-ACTELION-A-US2011-44698

PATIENT

DRUGS (7)
  1. LASIX [Concomitant]
  2. TRACLEER [Suspect]
     Indication: PULMONARY ARTERIAL HYPERTENSION
     Dosage: 125 MG, BID
     Route: 048
     Dates: start: 20040823, end: 20110202
  3. WARFARIN [Concomitant]
  4. REVATIO [Concomitant]
  5. POTASSIUM [Concomitant]
  6. PROTONIX [Concomitant]
  7. VICODIN [Concomitant]

REACTIONS (3)
  - SYNCOPE [None]
  - LIVER FUNCTION TEST ABNORMAL [None]
  - FIBULA FRACTURE [None]
